FAERS Safety Report 23442809 (Version 1)
Quarter: 2024Q1

REPORT INFORMATION
  Report Type: Spontaneous
  Country: FR (occurrence: FR)
  Receive Date: 20240125
  Receipt Date: 20240125
  Transmission Date: 20240410
  Serious: Yes (Other)
  Sender: FDA-Public Use
  Company Number: FR-ANIPHARMA-2024-FR-000023

PATIENT
  Age: 67 Year
  Sex: Male
  Weight: 85 kg

DRUGS (18)
  1. ATACAND [Suspect]
     Active Substance: CANDESARTAN CILEXETIL
     Indication: Product used for unknown indication
     Route: 065
     Dates: start: 2019
  2. POTASSIUM CHLORIDE, TROMETAMOL [Concomitant]
     Route: 065
  3. BISOPROLOL FUMARATE [Concomitant]
     Active Substance: BISOPROLOL FUMARATE
     Route: 065
  4. FOLIC ACID [Concomitant]
     Active Substance: FOLIC ACID
     Route: 065
  5. VITAMIN D3 [Concomitant]
     Active Substance: CHOLECALCIFEROL
     Route: 065
  6. OROCAL [Concomitant]
     Route: 065
  7. APROTININ [Concomitant]
     Active Substance: APROTININ
     Route: 065
  8. TITANOREINE [Concomitant]
     Active Substance: CARRAGEENAN\TITANIUM\ZINC
     Route: 065
  9. PANTOPRAZOLE [Concomitant]
     Active Substance: PANTOPRAZOLE
     Route: 065
  10. INSPRA [Concomitant]
     Active Substance: EPLERENONE
     Route: 065
  11. PREDNISONE [Suspect]
     Active Substance: PREDNISONE
     Route: 065
     Dates: start: 20190807
  12. AMIODARONE [Concomitant]
     Active Substance: AMIODARONE
     Route: 065
  13. RACECADOTRIL [Concomitant]
     Active Substance: RACECADOTRIL
     Route: 065
  14. MAGNESIUM AMINO ACID CHELATE, MAGNESIUM GLYCINATE [Concomitant]
     Route: 065
  15. FUROSEMIDE [Concomitant]
     Active Substance: FUROSEMIDE
     Route: 065
  16. FLECAINIDE [Concomitant]
     Active Substance: FLECAINIDE
     Route: 065
  17. ELIQUIS [Concomitant]
     Active Substance: APIXABAN
     Route: 065
  18. DOLIPRANE [Concomitant]
     Active Substance: ACETAMINOPHEN
     Route: 065

REACTIONS (12)
  - Cataract [Unknown]
  - Alopecia [Unknown]
  - Tremor [Unknown]
  - Haematoma [Unknown]
  - Skin necrosis [Unknown]
  - Diabetes mellitus [Unknown]
  - Cardiorenal syndrome [Unknown]
  - Cardiac failure [Unknown]
  - Ascites [Unknown]
  - Osteoporosis [Unknown]
  - Muscle atrophy [Unknown]
  - Gastrointestinal disorder [Unknown]

NARRATIVE: CASE EVENT DATE: 20230301
